FAERS Safety Report 16072972 (Version 1)
Quarter: 2019Q1

REPORT INFORMATION
  Report Type: Spontaneous
  Country: HU (occurrence: HU)
  Receive Date: 20190314
  Receipt Date: 20190314
  Transmission Date: 20190418
  Serious: Yes (Hospitalization, Other)
  Sender: FDA-Public Use
  Company Number: HU-MYLANLABS-2019M1023163

PATIENT

DRUGS (4)
  1. ALLOPURINOL. [Suspect]
     Active Substance: ALLOPURINOL
     Indication: PRODUCT USED FOR UNKNOWN INDICATION
     Dosage: UNK
     Route: 048
  2. TRAMADOL. [Suspect]
     Active Substance: TRAMADOL
     Indication: BACK PAIN
     Dosage: UNK
     Route: 042
  3. GUAIFENESIN. [Suspect]
     Active Substance: GUAIFENESIN
     Indication: BACK PAIN
     Dosage: UNK
     Route: 042
  4. METHYLPREDNISOLONE. [Suspect]
     Active Substance: METHYLPREDNISOLONE
     Indication: BACK PAIN
     Dosage: UNK
     Route: 042

REACTIONS (5)
  - Uveitis [Unknown]
  - Conjunctivitis [Unknown]
  - Stevens-Johnson syndrome [Unknown]
  - Pruritus generalised [Unknown]
  - Oropharyngeal candidiasis [Unknown]
